FAERS Safety Report 25635205 (Version 2)
Quarter: 2025Q4

REPORT INFORMATION
  Report Type: Spontaneous
  Country: US (occurrence: US)
  Receive Date: 20250802
  Receipt Date: 20251225
  Transmission Date: 20260117
  Serious: No
  Sender: ALEXION PHARMACEUTICALS
  Company Number: US-ASTRAZENECA-202507USA027164US

PATIENT
  Age: 74 Year
  Sex: Female
  Weight: 57.596 kg

DRUGS (26)
  1. DALIRESP [Suspect]
     Active Substance: ROFLUMILAST
     Indication: Chronic obstructive pulmonary disease
     Dosage: UNK
     Route: 065
  2. TYVASO DPI [Suspect]
     Active Substance: TREPROSTINIL
     Indication: Pulmonary arterial hypertension
     Dosage: 16 MICROGRAM, QID
  3. TYVASO DPI [Suspect]
     Active Substance: TREPROSTINIL
     Dosage: 32 MICROGRAM, QID
  4. TYVASO DPI [Suspect]
     Active Substance: TREPROSTINIL
     Dosage: UNK
     Dates: start: 20250102, end: 20250630
  5. TYLENOL [Suspect]
     Active Substance: ACETAMINOPHEN
     Indication: Headache
     Route: 065
  6. YUTREPIA [Suspect]
     Active Substance: TREPROSTINIL SODIUM
     Indication: Product used for unknown indication
     Dosage: 26.5 MICROGRAM, QID
     Route: 065
  7. YUTREPIA [Suspect]
     Active Substance: TREPROSTINIL SODIUM
     Dosage: 53 MICROGRAM, QID
     Route: 065
  8. YUTREPIA [Suspect]
     Active Substance: TREPROSTINIL SODIUM
     Dosage: UNK
     Route: 065
  9. YUTREPIA [Suspect]
     Active Substance: TREPROSTINIL SODIUM
     Dosage: UNK
     Route: 065
  10. SILDENAFIL CITRATE [Suspect]
     Active Substance: SILDENAFIL CITRATE
     Dosage: UNK
     Route: 065
  11. ALLEGRA [Suspect]
     Active Substance: FEXOFENADINE HYDROCHLORIDE
     Route: 065
  12. FLONASE [Suspect]
     Active Substance: FLUTICASONE PROPIONATE
     Route: 065
  13. ZYRTEC [Suspect]
     Active Substance: CETIRIZINE HYDROCHLORIDE
     Route: 065
  14. SYMBICORT [Concomitant]
     Active Substance: BUDESONIDE\FORMOTEROL FUMARATE DIHYDRATE
     Dosage: UNK
     Route: 065
  15. SPIRIVA RESPIMAT [Concomitant]
     Active Substance: TIOTROPIUM BROMIDE
     Dosage: UNK
     Route: 065
  16. SYSTANE (HYPROMELLOSE 2910 (4000 MPA.S)) [Concomitant]
     Active Substance: HYPROMELLOSE 2910 (4000 MPA.S)
     Dosage: UNK
     Route: 065
  17. FAMOTIDINE [Concomitant]
     Active Substance: FAMOTIDINE
     Dosage: UNK
     Route: 065
  18. ALBUTEROL\IPRATROPIUM [Concomitant]
     Active Substance: ALBUTEROL\IPRATROPIUM
     Dosage: UNK
     Route: 065
  19. PANTOPRAZOLE SODIUM [Concomitant]
     Active Substance: PANTOPRAZOLE SODIUM
     Dosage: UNK
     Route: 065
  20. VITAMINS [Concomitant]
     Active Substance: VITAMINS
     Dosage: UNK
     Route: 065
  21. VITAMIN D3 [Concomitant]
     Active Substance: CHOLECALCIFEROL
     Dosage: UNK
     Route: 065
  22. LEVOTHYROXINE SODIUM [Concomitant]
     Active Substance: LEVOTHYROXINE SODIUM
     Dosage: UNK
     Route: 065
  23. ATORVASTATIN CALCIUM [Concomitant]
     Active Substance: ATORVASTATIN CALCIUM
     Dosage: UNK
     Route: 065
  24. ALBUTEROL SULFATE [Concomitant]
     Active Substance: ALBUTEROL SULFATE
     Dosage: UNK
     Route: 065
  25. Citracal + D3 [Concomitant]
     Dosage: UNK
     Route: 065
  26. ASPIRIN [Concomitant]
     Active Substance: ASPIRIN
     Dosage: UNK
     Route: 065

REACTIONS (20)
  - Headache [Unknown]
  - Somnolence [Unknown]
  - Dyspnoea [Unknown]
  - Hypopnoea [Unknown]
  - Musculoskeletal discomfort [Unknown]
  - Bone disorder [Unknown]
  - Diarrhoea [Unknown]
  - Dizziness [Unknown]
  - Bronchospasm [Unknown]
  - Cough [Unknown]
  - Retching [Unknown]
  - Sinus congestion [Unknown]
  - Palpitations [Unknown]
  - Dyspnoea [Unknown]
  - Nasal congestion [Unknown]
  - Rhinitis [Unknown]
  - Nausea [Unknown]
  - Chest discomfort [Unknown]
  - Rhinorrhoea [Unknown]
  - Vomiting [Unknown]
